FAERS Safety Report 8025837-1 (Version None)
Quarter: 2012Q1

REPORT INFORMATION
  Report Type: 
  Country: None (occurrence: None)
  Receive Date: 20120105
  Receipt Date: 20110401
  Transmission Date: 20120608
  Serious: No
  Sender: FDA-Public Use
  Company Number: US-ABBOTT-11P-163-0716727-00

PATIENT
  Sex: Female
  Weight: 63.106 kg

DRUGS (2)
  1. SYNTHROID [Suspect]
     Route: 048
     Dates: start: 20100101
  2. SYNTHROID [Suspect]
     Indication: HYPOTHYROIDISM
     Route: 048
     Dates: start: 20090101, end: 20100101

REACTIONS (3)
  - WEIGHT DECREASED [None]
  - BLOOD THYROID STIMULATING HORMONE INCREASED [None]
  - PALPITATIONS [None]
